FAERS Safety Report 5093040-3 (Version None)
Quarter: 2006Q3

REPORT INFORMATION
  Report Type: 
  Country: None (occurrence: None)
  Receive Date: 20060830
  Receipt Date: 20060821
  Transmission Date: 20061208
  Serious: Yes (Hospitalization)
  Sender: FDA-Public Use
  Company Number: GB-JNJFOC-20060805234

PATIENT
  Age: 11 Month
  Sex: Female
  Weight: 8.5 kg

DRUGS (6)
  1. CONCENTRATED MOTRIN INFANTS' [Suspect]
     Route: 048
  2. CONCENTRATED MOTRIN INFANTS' [Suspect]
     Indication: PYREXIA
     Route: 048
  3. CALCIUM RESONIUM [Concomitant]
     Indication: BLOOD POTASSIUM ABNORMAL
     Route: 048
  4. CEFOTAXIME [Concomitant]
     Route: 042
  5. ALBUTEROL SPIROS [Concomitant]
     Indication: BLOOD POTASSIUM ABNORMAL
     Route: 055
  6. TRIMETHOPRIM [Concomitant]
     Route: 048

REACTIONS (1)
  - PERITONEAL DIALYSIS [None]
